FAERS Safety Report 22861973 (Version 2)
Quarter: 2023Q4

REPORT INFORMATION
  Report Type: Report from Study
  Country: US (occurrence: US)
  Receive Date: 20230824
  Receipt Date: 20231128
  Transmission Date: 20240110
  Serious: Yes (Hospitalization, Other)
  Sender: FDA-Public Use
  Company Number: US-PFIZER INC-US-GBT-020442

PATIENT
  Age: 55 Year
  Sex: Female

DRUGS (2)
  1. OXBRYTA [Suspect]
     Active Substance: VOXELOTOR
     Indication: Sickle cell disease
     Dosage: 1500 MG, 1X/DAY
     Route: 048
     Dates: start: 202110
  2. OXBRYTA [Suspect]
     Active Substance: VOXELOTOR
     Dosage: 1500 MG, 1X/DAY
     Route: 048
     Dates: start: 202305

REACTIONS (13)
  - Sickle cell anaemia with crisis [Not Recovered/Not Resolved]
  - Suicidal ideation [Unknown]
  - Pyrexia [Unknown]
  - Migraine [Recovering/Resolving]
  - Burning sensation [Recovered/Resolved]
  - Depression [Recovering/Resolving]
  - Muscle spasms [Not Recovered/Not Resolved]
  - Faeces soft [Recovered/Resolved]
  - Pain [Recovering/Resolving]
  - Vomiting [Unknown]
  - Nausea [Recovering/Resolving]
  - Muscle contractions involuntary [Unknown]
  - Feeling abnormal [Unknown]

NARRATIVE: CASE EVENT DATE: 20230101
